FAERS Safety Report 11423097 (Version 1)
Quarter: 2015Q3

REPORT INFORMATION
  Report Type: Spontaneous
  Country: US (occurrence: None)
  Receive Date: 20150826
  Receipt Date: 20150826
  Transmission Date: 20151125
  Serious: No
  Sender: FDA-Public Use
  Company Number: None

PATIENT
  Age: 58 Year
  Sex: Female
  Weight: 104.33 kg

DRUGS (5)
  1. MVI [Concomitant]
     Active Substance: VITAMINS
  2. GLUCOSAMINE/CONDROITIN [Concomitant]
  3. CA W/ VIT D [Concomitant]
  4. FISH OIL [Concomitant]
     Active Substance: FISH OIL
  5. ZOCOR [Suspect]
     Active Substance: SIMVASTATIN
     Indication: BLOOD CHOLESTEROL INCREASED
     Route: 048

REACTIONS (3)
  - Muscular weakness [None]
  - Grip strength decreased [None]
  - Arthralgia [None]

NARRATIVE: CASE EVENT DATE: 20150616
